FAERS Safety Report 9882393 (Version 2)
Quarter: 2014Q4

REPORT INFORMATION
  Report Type: Spontaneous
  Country: SE (occurrence: SE)
  Receive Date: 20140207
  Receipt Date: 20141216
  Transmission Date: 20150529
  Serious: Yes (Hospitalization)
  Sender: FDA-Public Use
  Company Number: SE-GLAXOSMITHKLINE-B0967091A

PATIENT
  Age: 43 Year
  Sex: Male

DRUGS (2)
  1. ANAFRANIL [Interacting]
     Active Substance: CLOMIPRAMINE HYDROCHLORIDE
     Indication: DEPRESSION
     Dosage: UNK, U
     Route: 065
     Dates: start: 1999, end: 2006
  2. LAMICTAL [Suspect]
     Active Substance: LAMOTRIGINE
     Indication: DYSTHYMIC DISORDER
     Dosage: UNK UNK, U
     Route: 065
     Dates: start: 20060701, end: 20060823

REACTIONS (3)
  - Psychotic disorder [Recovered/Resolved]
  - Mania [Recovered/Resolved]
  - Drug interaction [Recovered/Resolved]

NARRATIVE: CASE EVENT DATE: 20060810
